FAERS Safety Report 9315949 (Version 1)
Quarter: 2013Q2

REPORT INFORMATION
  Report Type: Spontaneous
  Country: FR (occurrence: FR)
  Receive Date: 20130530
  Receipt Date: 20130530
  Transmission Date: 20140414
  Serious: Yes (Other)
  Sender: FDA-Public Use
  Company Number: FR-ROCHE-1191820

PATIENT
  Age: 77 Year
  Sex: Female
  Weight: 56 kg

DRUGS (10)
  1. ROACTEMRA [Suspect]
     Indication: PRODUCT USED FOR UNKNOWN INDICATION
     Dosage: CYCLICAL
     Route: 041
     Dates: start: 20110912, end: 20111021
  2. PREDNISONE [Concomitant]
     Indication: RHEUMATOID ARTHRITIS
     Route: 048
     Dates: start: 2000
  3. PREDNISONE [Concomitant]
     Route: 048
  4. METHOTREXATE [Concomitant]
     Indication: RHEUMATOID ARTHRITIS
     Route: 048
     Dates: start: 2002
  5. METHOTREXATE [Concomitant]
     Route: 048
  6. ALDACTONE (FRANCE) [Concomitant]
     Route: 065
     Dates: start: 2000
  7. VENLAFAXINE [Concomitant]
     Route: 065
     Dates: start: 2000
  8. LEVOTHYROX [Concomitant]
     Route: 065
     Dates: start: 2000
  9. CALCIDOSE [Concomitant]
     Route: 065
     Dates: start: 2000
  10. SKENAN [Concomitant]
     Route: 065
     Dates: start: 2000

REACTIONS (1)
  - Skin ulcer [Recovered/Resolved]
